FAERS Safety Report 8142468-3 (Version None)
Quarter: 2012Q1

REPORT INFORMATION
  Report Type: 
  Country: None (occurrence: None)
  Receive Date: 20120216
  Receipt Date: 20120214
  Transmission Date: 20120608
  Serious: Yes (Hospitalization, Other)
  Sender: FDA-Public Use
  Company Number: US-ABBOTT-12P-163-0904305-00

PATIENT
  Sex: Female
  Weight: 99.88 kg

DRUGS (15)
  1. MULTI-VITAMINS [Concomitant]
     Indication: PRODUCT USED FOR UNKNOWN INDICATION
     Route: 048
     Dates: start: 20111026, end: 20111201
  2. CAFFEINE [Concomitant]
     Indication: PRODUCT USED FOR UNKNOWN INDICATION
     Dosage: MOUNTAIN DEW, 3 IN 1 DAY
     Route: 048
     Dates: start: 20110923, end: 20111202
  3. COMPAZINE [Concomitant]
     Indication: NAUSEA
     Route: 048
     Dates: start: 20110923, end: 20111130
  4. DOVONEX [Concomitant]
     Indication: PSORIASIS
     Dosage: 2 TOTAL
     Route: 061
     Dates: start: 20111025, end: 20111104
  5. HUMIRA [Suspect]
     Indication: PSORIATIC ARTHROPATHY
     Dosage: ONE SHOT
     Route: 050
     Dates: start: 20110802, end: 20111024
  6. DILAUDID [Concomitant]
     Indication: PRODUCT USED FOR UNKNOWN INDICATION
     Route: 042
     Dates: start: 20111201, end: 20111205
  7. PROGESTERONE [Concomitant]
     Indication: PREGNANCY
     Dates: start: 20111025, end: 20111202
  8. CHAMOMILLE TEA [Concomitant]
     Indication: PRODUCT USED FOR UNKNOWN INDICATION
     Dosage: 3.5 SERVING A DAY
     Route: 048
     Dates: start: 20110923, end: 20111202
  9. COMPAZINE [Concomitant]
     Indication: PAIN
  10. TACLONEX [Concomitant]
     Indication: ARTHRALGIA
     Dosage: DAILY, FACE AND SCALP
     Route: 061
     Dates: start: 20111025, end: 20111201
  11. EXTRA STRENGTH TYLENOL [Concomitant]
     Indication: PAIN
     Dosage: 8 IN 1 DAY, 4 PILLS AS REQUIRED
     Route: 048
     Dates: start: 20110923, end: 20111115
  12. METHADONE HCL [Concomitant]
     Indication: PAIN
     Dosage: 4 IN 1 DAY, TAKES THROUGH THE NIGHT
     Route: 048
     Dates: start: 20110923, end: 20111201
  13. CYTOTEC [Concomitant]
     Indication: LABOUR INDUCTION
     Dosage: 1 PILL TOTAL
     Route: 048
     Dates: start: 20111202, end: 20111205
  14. METHOTREXATE [Concomitant]
     Indication: PSORIATIC ARTHROPATHY
     Route: 048
     Dates: start: 20090101, end: 20110801
  15. MORPHINE [Concomitant]
     Indication: PAIN
     Route: 048
     Dates: start: 20110923, end: 20111201

REACTIONS (6)
  - URINARY TRACT INFECTION [None]
  - ARTHRALGIA [None]
  - PAIN [None]
  - ABORTION SPONTANEOUS [None]
  - PSORIASIS [None]
  - NAUSEA [None]
